FAERS Safety Report 5139994-8 (Version None)
Quarter: 2006Q4

REPORT INFORMATION
  Report Type: 
  Country: None (occurrence: None)
  Receive Date: 20061025
  Receipt Date: 20060906
  Transmission Date: 20070319
  Serious: Yes (Hospitalization)
  Sender: FDA-Public Use
  Company Number: 2006119280

PATIENT
  Sex: 0

DRUGS (1)
  1. BEXTRA [Suspect]

REACTIONS (2)
  - CARDIAC PACEMAKER INSERTION [None]
  - VASCULAR BYPASS GRAFT [None]
